FAERS Safety Report 4400561-2 (Version None)
Quarter: 2004Q3

REPORT INFORMATION
  Report Type: 
  Country: None (occurrence: None)
  Receive Date: 20040716
  Receipt Date: 20040716
  Transmission Date: 20050211
  Serious: No
  Sender: FDA-Public Use
  Company Number: None

PATIENT
  Age: 35 Year
  Sex: Male
  Weight: 104.3273 kg

DRUGS (1)
  1. CLOZARIL [Suspect]
     Indication: SCHIZOPHRENIA
     Dosage: 750 MG 24 HOURS ORAL
     Route: 048
     Dates: start: 20040120, end: 20040705

REACTIONS (2)
  - MYOCARDITIS [None]
  - MYOSITIS [None]
